FAERS Safety Report 11966922 (Version 1)
Quarter: 2016Q1

REPORT INFORMATION
  Report Type: Spontaneous
  Country: US (occurrence: US)
  Receive Date: 20160127
  Receipt Date: 20160127
  Transmission Date: 20160526
  Serious: Yes (Hospitalization)
  Sender: FDA-Public Use
  Company Number: US-BIOGEN-2016BI00180614

PATIENT
  Sex: Female

DRUGS (1)
  1. TECFIDERA [Suspect]
     Active Substance: DIMETHYL FUMARATE
     Indication: MULTIPLE SCLEROSIS
     Route: 065
     Dates: start: 20150416, end: 20150723

REACTIONS (5)
  - Insomnia [Recovered/Resolved]
  - Intentional underdose [Recovered/Resolved]
  - Functional gastrointestinal disorder [Recovered/Resolved]
  - Hypersensitivity [Recovered/Resolved]
  - Feeding disorder [Recovered/Resolved]
